FAERS Safety Report 15354684 (Version 1)
Quarter: 2018Q3

REPORT INFORMATION
  Report Type: Report from Study
  Country: IT (occurrence: IT)
  Receive Date: 20180906
  Receipt Date: 20180906
  Transmission Date: 20181010
  Serious: Yes (Other)
  Sender: FDA-Public Use
  Company Number: IT-BRISTOL-MYERS SQUIBB COMPANY-BMS-2018-082320

PATIENT
  Age: 55 Year
  Sex: Female
  Weight: 88 kg

DRUGS (3)
  1. JANUVIA [Suspect]
     Active Substance: SITAGLIPTIN PHOSPHATE
     Indication: TYPE 2 DIABETES MELLITUS
     Dosage: 1 DF, UNK
     Route: 048
     Dates: start: 20150629, end: 20170116
  2. SIMVASTATINA ALTER [Concomitant]
     Indication: DYSLIPIDAEMIA
     Dosage: 1 DF, UNK
     Route: 048
  3. METFORMIN HYDROCHLORIDE. [Suspect]
     Active Substance: METFORMIN HYDROCHLORIDE
     Indication: TYPE 2 DIABETES MELLITUS
     Dosage: 2 DF DAILY
     Route: 048
     Dates: start: 20090514, end: 20170116

REACTIONS (4)
  - Vision blurred [Recovering/Resolving]
  - Tachycardia [Recovering/Resolving]
  - Loss of consciousness [Recovering/Resolving]
  - Gastrointestinal pain [Recovering/Resolving]
